FAERS Safety Report 15056380 (Version 1)
Quarter: 2018Q2

REPORT INFORMATION
  Report Type: Spontaneous
  Country: US (occurrence: US)
  Receive Date: 20180604
  Receipt Date: 20180604
  Transmission Date: 20180711
  Serious: Yes (Other)
  Sender: FDA-Public Use
  Company Number: None

PATIENT
  Age: 68 Year
  Sex: Male

DRUGS (2)
  1. YESCARTA [Suspect]
     Active Substance: AXICABTAGENE CILOLEUCEL
     Indication: DIFFUSE LARGE B-CELL LYMPHOMA RECURRENT
     Dosage: MAX 2 X 10^8 CART CELLS
     Route: 046
     Dates: start: 20180316
  2. YESCARTA [Suspect]
     Active Substance: AXICABTAGENE CILOLEUCEL
     Indication: DIFFUSE LARGE B-CELL LYMPHOMA REFRACTORY
     Dosage: MAX 2 X 10^8 CART CELLS
     Route: 046
     Dates: start: 20180316

REACTIONS (3)
  - Neurotoxicity [None]
  - Atrial fibrillation [None]
  - Cardiac failure [None]

NARRATIVE: CASE EVENT DATE: 20180321
